FAERS Safety Report 12800570 (Version 2)
Quarter: 2016Q4

REPORT INFORMATION
  Report Type: Report from Study
  Country: None (occurrence: BR)
  Receive Date: 20160930
  Receipt Date: 20161006
  Transmission Date: 20170207
  Serious: Yes (Hospitalization, Other)
  Sender: FDA-Public Use
  Company Number: BR-ABBVIE-09P-020-0560500-00

PATIENT
  Age: 50 Year
  Sex: Female
  Weight: 52 kg

DRUGS (4)
  1. MODULEN [Concomitant]
     Indication: GASTROINTESTINAL DISORDER
  2. HUMIRA [Suspect]
     Active Substance: ADALIMUMAB
     Indication: CROHN^S DISEASE
     Dosage: INDUCTION - 160MG-80MG-15 DAYS
     Route: 058
     Dates: start: 20081231
  3. OMEPRAZOLE. [Concomitant]
     Active Substance: OMEPRAZOLE
     Indication: PROPHYLAXIS
  4. OMEPRAZOLE. [Concomitant]
     Active Substance: OMEPRAZOLE
     Indication: GASTRIC DISORDER
     Route: 048
     Dates: start: 2006

REACTIONS (12)
  - Wound secretion [Recovered/Resolved]
  - Headache [Not Recovered/Not Resolved]
  - Intestinal obstruction [Recovered/Resolved]
  - Nosocomial infection [Recovered/Resolved]
  - Flatulence [Recovering/Resolving]
  - Abnormal faeces [Unknown]
  - Abdominal distension [Not Recovered/Not Resolved]
  - Malaise [Recovered/Resolved]
  - Abdominal pain [Recovered/Resolved]
  - Injection site rash [Unknown]
  - Intestinal stenosis [Recovered/Resolved]
  - Crohn^s disease [Recovered/Resolved]

NARRATIVE: CASE EVENT DATE: 200812
